FAERS Safety Report 19337109 (Version 1)
Quarter: 2021Q2

REPORT INFORMATION
  Report Type: Spontaneous
  Country: US (occurrence: US)
  Receive Date: 20210530
  Receipt Date: 20210530
  Transmission Date: 20210717
  Serious: Yes (Other)
  Sender: FDA-Public Use
  Company Number: US-ADVANZ PHARMA-202011010011

PATIENT

DRUGS (1)
  1. HYDROXYCHLOROQUINE [Suspect]
     Active Substance: HYDROXYCHLOROQUINE
     Dosage: UNK (POSSIBLY 5 WEEKS)
     Dates: start: 202006

REACTIONS (5)
  - Drug reaction with eosinophilia and systemic symptoms [Unknown]
  - White blood cell count decreased [Unknown]
  - Rash [Unknown]
  - Pyrexia [Unknown]
  - Liver function test increased [Unknown]
